FAERS Safety Report 7828044-8 (Version None)
Quarter: 2011Q4

REPORT INFORMATION
  Report Type: 
  Country: None (occurrence: None)
  Receive Date: 20111020
  Receipt Date: 20110914
  Transmission Date: 20120403
  Serious: Yes (Hospitalization)
  Sender: FDA-Public Use
  Company Number: FR-GLAXOSMITHKLINE-B0747269A

PATIENT
  Sex: Male

DRUGS (6)
  1. NEXIUM [Concomitant]
     Indication: GASTRITIS PROPHYLAXIS
     Dosage: 20MG PER DAY
     Route: 048
  2. KEPPRA [Concomitant]
     Dosage: 500MG TWICE PER DAY
     Route: 048
  3. PROZAC [Concomitant]
     Dosage: 20MG PER DAY
     Route: 048
  4. VITAMIN B6 [Concomitant]
     Indication: VITAMIN SUPPLEMENTATION
     Route: 048
  5. VITAMIN B1 TAB [Concomitant]
     Indication: VITAMIN SUPPLEMENTATION
     Dosage: 1UNIT THREE TIMES PER DAY
     Route: 048
  6. ARIXTRA [Suspect]
     Indication: PRODUCT USED FOR UNKNOWN INDICATION
     Dosage: 2.5MG PER DAY
     Route: 058
     Dates: start: 20110624, end: 20110712

REACTIONS (5)
  - MOTOR DYSFUNCTION [None]
  - DISTURBANCE IN ATTENTION [None]
  - AGITATION [None]
  - COMMUNICATION DISORDER [None]
  - CEREBRAL HAEMORRHAGE [None]
